FAERS Safety Report 23951193 (Version 1)
Quarter: 2024Q2

REPORT INFORMATION
  Report Type: Report from Study
  Country: US (occurrence: US)
  Receive Date: 20240607
  Receipt Date: 20240607
  Transmission Date: 20240715
  Serious: No
  Sender: FDA-Public Use
  Company Number: US-SPRINGWORKS THERAPEUTICS-SW-001572

PATIENT
  Age: 63 Year
  Sex: Male

DRUGS (2)
  1. NIROGACESTAT [Suspect]
     Active Substance: NIROGACESTAT
     Indication: Product used for unknown indication
     Dosage: 150 MILLIGRAM, BID
     Route: 048
     Dates: start: 20240416
  2. NIROGACESTAT [Suspect]
     Active Substance: NIROGACESTAT
     Dosage: 150 MILLIGRAM, BID
     Dates: start: 20240417

REACTIONS (8)
  - Visual impairment [Unknown]
  - Abdominal discomfort [Unknown]
  - Paranasal sinus hyposecretion [Recovering/Resolving]
  - Nasal dryness [Unknown]
  - Fatigue [Not Recovered/Not Resolved]
  - Blood phosphorus decreased [Recovering/Resolving]
  - Diarrhoea [Not Recovered/Not Resolved]
  - Inappropriate schedule of product administration [Unknown]

NARRATIVE: CASE EVENT DATE: 20240416
